FAERS Safety Report 9131208 (Version 1)
Quarter: 2013Q1

REPORT INFORMATION
  Report Type: Spontaneous
  Country: FR (occurrence: FR)
  Receive Date: 20130301
  Receipt Date: 20130301
  Transmission Date: 20140127
  Serious: Yes (Hospitalization, Other)
  Sender: FDA-Public Use
  Company Number: PHHY2013FR019386

PATIENT
  Age: 60 Year
  Sex: Male

DRUGS (3)
  1. EVEROLIMUS [Suspect]
     Indication: RENAL TRANSPLANT
     Dosage: UNK UKN, UNK
     Dates: start: 2002
  2. DIURETICS [Concomitant]
     Dosage: UNK UKN, UNK
  3. MYCOPHENOLATE MOFETIL [Concomitant]
     Dosage: UNK UKN, UNK

REACTIONS (14)
  - Cardiac tamponade [Unknown]
  - Pericardial effusion [Recovered/Resolved]
  - Respiratory failure [Unknown]
  - Cough [Unknown]
  - Pyrexia [Unknown]
  - Dyspnoea [Unknown]
  - Hypoxia [Unknown]
  - Rales [Unknown]
  - Lung infiltration [Unknown]
  - Right ventricular failure [Unknown]
  - Venous pressure jugular decreased [Unknown]
  - Glomerular filtration rate decreased [Unknown]
  - Microcytic anaemia [Unknown]
  - C-reactive protein increased [Recovered/Resolved]
